FAERS Safety Report 24702174 (Version 1)
Quarter: 2024Q4

REPORT INFORMATION
  Report Type: Report from Study
  Country: HU (occurrence: HU)
  Receive Date: 20241205
  Receipt Date: 20241205
  Transmission Date: 20250114
  Serious: Yes (Hospitalization)
  Sender: ABBVIE
  Company Number: HU-ABBVIE-6029359

PATIENT
  Age: 73 Year
  Sex: Female

DRUGS (9)
  1. CARBIDOPA\LEVODOPA [Suspect]
     Active Substance: CARBIDOPA\LEVODOPA
     Indication: Parkinson^s disease
     Dosage: MORNING DOSE: 3.2 ML; CONTINUOUS DOSE: 2.4 ML/HOUR; EXTRA DOSE: 2.0 ML
     Route: 050
     Dates: start: 20241012
  2. CARBIDOPA\LEVODOPA [Suspect]
     Active Substance: CARBIDOPA\LEVODOPA
  3. ESCITALOPRAM [Concomitant]
     Active Substance: ESCITALOPRAM OXALATE
     Indication: Depression
     Dosage: FORM STRENGTH: 10 MILLIGRAM
     Route: 048
     Dates: start: 202411, end: 20241120
  4. CONTROLOC [Concomitant]
     Active Substance: PANTOPRAZOLE SODIUM
     Indication: Dyspepsia
     Dosage: FORM STRENGTH: 40 MILLIGRAM
     Route: 048
     Dates: start: 2020
  5. Madopar (levodopa, benserazide) [Concomitant]
     Indication: Parkinson^s disease
     Dosage: 100 MG LEVODOPA, 25 MG BENSERAZIDE / TABLET?FREQUENCY TEXT: 2 CAPSULES IN THE EVENING
     Route: 048
  6. Ketilept (Quetiapine) [Concomitant]
     Indication: Depression
     Dosage: FORM STRENGTH: 25 MILLIGRAM?FREQUENCY TEXT: HALF TABLET IN THE EVENING
     Route: 048
     Dates: start: 20241120
  7. NEUPRO [Concomitant]
     Active Substance: ROTIGOTINE
     Indication: Parkinson^s disease
     Dosage: FORM STRENGTH: 4 MILLIGRAM
     Route: 062
  8. Sanval (Zolpidem) [Concomitant]
     Indication: Insomnia
     Dosage: FORM STRENGTH:10 MILLIGRAM
     Route: 048
     Dates: start: 202410
  9. Frontin (alprazolam) [Concomitant]
     Indication: Insomnia
     Dosage: FORM STRENGTH: 0.25 MILLIGRAM?FREQUENCY TEXT: 2 TABLET DAILY
     Route: 048
     Dates: start: 20241120

REACTIONS (2)
  - General physical health deterioration [Recovered/Resolved]
  - Motor dysfunction [Recovered/Resolved]

NARRATIVE: CASE EVENT DATE: 20241001
